FAERS Safety Report 5122751-6 (Version None)
Quarter: 2006Q4

REPORT INFORMATION
  Report Type: 
  Country: None (occurrence: None)
  Receive Date: 20061009
  Receipt Date: 20060130
  Transmission Date: 20070319
  Serious: Yes (Hospitalization, Other)
  Sender: FDA-Public Use
  Company Number: DE-BAYER-200610134BVD

PATIENT
  Age: 64 Year
  Sex: Female
  Weight: 87 kg

DRUGS (13)
  1. SORAFENIB [Suspect]
     Indication: METASTATIC RENAL CELL CARCINOMA
     Dosage: TOTAL DAILY DOSE: 800 MG
     Route: 048
     Dates: start: 20050901
  2. CARMEN [Concomitant]
     Route: 065
     Dates: start: 20040101, end: 20051205
  3. CARMEN [Concomitant]
     Route: 065
     Dates: start: 20051206, end: 20051219
  4. LEVOTHYROXINE SODIUM [Concomitant]
     Route: 065
     Dates: start: 20040101
  5. TORSEMIDE [Concomitant]
     Route: 065
     Dates: start: 20040101, end: 20051122
  6. EUNOVA [Concomitant]
     Route: 065
     Dates: start: 20050901
  7. EUCERIN [Concomitant]
     Route: 003
     Dates: start: 20051004
  8. HCT [Concomitant]
     Route: 065
     Dates: start: 20051122
  9. MOXONIDIN [Concomitant]
     Route: 065
     Dates: start: 20060112
  10. MOXONIDIN [Concomitant]
     Route: 065
     Dates: start: 20051220, end: 20060111
  11. RAMIPRIL [Concomitant]
     Dates: start: 20060125
  12. RAMIPRIL [Concomitant]
     Dates: start: 20051122, end: 20060124
  13. PANTOZOL [Concomitant]
     Dates: start: 20060125

REACTIONS (6)
  - BLOOD GLUCOSE INCREASED [None]
  - BLOOD PRESSURE INCREASED [None]
  - DIZZINESS [None]
  - NAUSEA [None]
  - SOMNOLENCE [None]
  - SYNCOPE [None]
